FAERS Safety Report 6576175-5 (Version None)
Quarter: 2010Q1

REPORT INFORMATION
  Report Type: 
  Country: None (occurrence: None)
  Receive Date: 20100209
  Receipt Date: 20100115
  Transmission Date: 20100710
  Serious: Yes (Hospitalization, Other)
  Sender: FDA-Public Use
  Company Number: PHHY2010IT03019

PATIENT
  Sex: Male

DRUGS (13)
  1. S-OIV FOCETRIA (NVD) [Suspect]
     Indication: IMMUNISATION
     Dosage: 1 DF
     Route: 030
     Dates: start: 20091127, end: 20091127
  2. S-OIV FOCETRIA (NVD) [Suspect]
     Dosage: 1 DF
     Route: 030
     Dates: start: 20091218, end: 20091218
  3. MYFORTIC [Suspect]
     Indication: RENAL TRANSPLANT
     Dosage: 180 MG, UNK
  4. SANDIMMUNE [Suspect]
     Indication: RENAL TRANSPLANT
     Dosage: 50 MG, UNK
  5. ASPIRIN [Concomitant]
     Dosage: 100 MG, UNK
  6. PLAVIX [Concomitant]
     Dosage: UNK
  7. DILATREND [Concomitant]
     Dosage: 6.25 MG, UNK
  8. LORTAAN [Concomitant]
     Dosage: 50 MG, UNK
  9. TORVAST [Concomitant]
     Dosage: 40 MG, UNK
  10. SEACOR [Concomitant]
  11. PARIET [Concomitant]
  12. ZYLORIC [Concomitant]
  13. XATRAL [Concomitant]
     Dosage: 10 MG, UNK

REACTIONS (19)
  - ARTHRALGIA [None]
  - ASTHENIA [None]
  - BREATH SOUNDS ABNORMAL [None]
  - CHILLS [None]
  - CYTOMEGALOVIRUS INFECTION [None]
  - DIVERTICULUM INTESTINAL [None]
  - GYNAECOMASTIA [None]
  - HEPATOMEGALY [None]
  - HYPOCAPNIA [None]
  - HYPOXIA [None]
  - LUNG CONSOLIDATION [None]
  - LYMPHADENOPATHY [None]
  - MYALGIA [None]
  - NEPHROPATHY TOXIC [None]
  - PALLOR [None]
  - PANCYTOPENIA [None]
  - PNEUMONIA [None]
  - PYREXIA [None]
  - SCAR [None]
